FAERS Safety Report 8648170 (Version 2)
Quarter: 2014Q4

REPORT INFORMATION
  Report Type: Report from Study
  Country: BD (occurrence: BD)
  Receive Date: 20120703
  Receipt Date: 20141203
  Transmission Date: 20150529
  Serious: Yes (Death, Hospitalization, Other)
  Sender: FDA-Public Use
  Company Number: PHHY2012BD056522

PATIENT
  Age: 41 Year
  Sex: Male

DRUGS (1)
  1. SEBIVO [Suspect]
     Active Substance: TELBIVUDINE
     Indication: HEPATITIS B
     Dosage: UNK UKN, QD
     Route: 048
     Dates: start: 20110813

REACTIONS (5)
  - Haematemesis [Fatal]
  - Hepatic cirrhosis [Fatal]
  - Vomiting [Fatal]
  - Asthenia [Fatal]
  - Weight decreased [Fatal]

NARRATIVE: CASE EVENT DATE: 20120101
